FAERS Safety Report 5317172-7 (Version None)
Quarter: 2007Q2

REPORT INFORMATION
  Report Type: 
  Country: None (occurrence: None)
  Receive Date: 20070504
  Receipt Date: 20070425
  Transmission Date: 20071010
  Serious: Yes (Other)
  Sender: FDA-Public Use
  Company Number: US-PFIZER INC-2007013043

PATIENT
  Sex: Male
  Weight: 90.7 kg

DRUGS (14)
  1. NEURONTIN [Suspect]
     Indication: DIABETIC NEUROPATHY
  2. LYRICA [Suspect]
     Indication: DIABETIC NEUROPATHY
     Dates: start: 20061218, end: 20070101
  3. LYRICA [Suspect]
     Indication: NEUROPATHY PERIPHERAL
  4. NEXIUM [Concomitant]
     Indication: DYSPEPSIA
  5. GLYBURIDE [Concomitant]
     Indication: DIABETES MELLITUS
  6. AMITRIPTYLINE HCL [Concomitant]
  7. THEOPHYLLINE [Concomitant]
     Indication: ASTHMA
  8. DURAGESIC-100 [Concomitant]
     Indication: PAIN
  9. NITROGLYCERIN [Concomitant]
  10. ZOLOFT [Concomitant]
     Indication: DEPRESSION
  11. LISINOPRIL [Concomitant]
     Indication: CARDIAC DISORDER
  12. FUROSEMIDE [Concomitant]
  13. LASIX [Concomitant]
  14. CARAFATE [Concomitant]

REACTIONS (9)
  - BURNING SENSATION [None]
  - DIZZINESS [None]
  - DYSSTASIA [None]
  - LACRIMATION INCREASED [None]
  - OEDEMA [None]
  - PAIN [None]
  - SOMNOLENCE [None]
  - SWELLING [None]
  - VISION BLURRED [None]
